FAERS Safety Report 7362351-0 (Version None)
Quarter: 2011Q1

REPORT INFORMATION
  Report Type: 
  Country: None (occurrence: None)
  Receive Date: 20110318
  Receipt Date: 20110309
  Transmission Date: 20110831
  Serious: Yes (Death)
  Sender: FDA-Public Use
  Company Number: US-CELGENEUS-163-21880-11031247

PATIENT
  Age: 61 Year
  Sex: Female

DRUGS (7)
  1. GABAPENTIN [Concomitant]
     Route: 065
  2. MEGESTEROL [Concomitant]
     Route: 065
  3. NYSTATIN [Concomitant]
     Route: 048
  4. OMEPRAZOLE [Concomitant]
     Route: 065
  5. FERROUS SULFATE TAB [Concomitant]
     Route: 065
  6. TRICITRATES [Concomitant]
     Route: 065
  7. REVLIMID [Suspect]
     Indication: MULTIPLE MYELOMA
     Dosage: 25 MILLIGRAM
     Route: 048
     Dates: start: 20090401, end: 20090801

REACTIONS (2)
  - NO THERAPEUTIC RESPONSE [None]
  - DEATH [None]
